FAERS Safety Report 14288181 (Version 1)
Quarter: 2017Q4

REPORT INFORMATION
  Report Type: Report from Study
  Country: DE (occurrence: DE)
  Receive Date: 20171214
  Receipt Date: 20171214
  Transmission Date: 20180321
  Serious: Yes (Hospitalization, Other)
  Sender: FDA-Public Use
  Company Number: DE-TEVA-2017-DE-830753

PATIENT
  Age: 74 Year
  Sex: Female

DRUGS (7)
  1. MTX [Suspect]
     Active Substance: METHOTREXATE SODIUM
     Route: 065
     Dates: start: 2015, end: 201612
  2. VALSARTAN. [Concomitant]
     Active Substance: VALSARTAN
     Indication: PRODUCT USED FOR UNKNOWN INDICATION
  3. MTX [Suspect]
     Active Substance: METHOTREXATE SODIUM
     Indication: PRODUCT USED FOR UNKNOWN INDICATION
     Route: 065
     Dates: start: 2014, end: 2015
  4. HUMIRA [Suspect]
     Active Substance: ADALIMUMAB
     Indication: RHEUMATIC DISORDER
     Route: 058
     Dates: start: 201409
  5. AMLODIPIN [Concomitant]
     Active Substance: AMLODIPINE BESYLATE
     Indication: PRODUCT USED FOR UNKNOWN INDICATION
  6. TORASEMID [Concomitant]
     Active Substance: TORSEMIDE
     Indication: PRODUCT USED FOR UNKNOWN INDICATION
  7. INNOHEP [Concomitant]
     Active Substance: TINZAPARIN SODIUM
     Indication: PRODUCT USED FOR UNKNOWN INDICATION

REACTIONS (13)
  - Dyspnoea [Unknown]
  - Pneumothorax traumatic [Unknown]
  - Chest X-ray abnormal [Recovered/Resolved]
  - Pneumonia [Recovered/Resolved]
  - Sinus tachycardia [Unknown]
  - Deep vein thrombosis [Recovered/Resolved]
  - Chronic respiratory failure [Unknown]
  - Lymphoproliferative disorder [Recovered/Resolved]
  - Sepsis [Recovered/Resolved]
  - General physical health deterioration [Unknown]
  - Interstitial lung disease [Recovered/Resolved]
  - Pulmonary embolism [Recovered/Resolved]
  - Productive cough [Unknown]

NARRATIVE: CASE EVENT DATE: 2014
